FAERS Safety Report 17718833 (Version 1)
Quarter: 2020Q2

REPORT INFORMATION
  Report Type: Spontaneous
  Country: ES (occurrence: ES)
  Receive Date: 20200428
  Receipt Date: 20200428
  Transmission Date: 20200714
  Serious: Yes (Life-Threatening)
  Sender: FDA-Public Use
  Company Number: ES-PFIZER INC-2020167340

PATIENT
  Age: 72 Year
  Sex: Male

DRUGS (3)
  1. LINEZOLID. [Suspect]
     Active Substance: LINEZOLID
     Indication: BILIARY TRACT INFECTION
     Dosage: 600 MG, 2X/DAY (EVERY 12 HOURS)
     Route: 042
     Dates: start: 20190926, end: 20191001
  2. AMPICILLIN [Suspect]
     Active Substance: AMPICILLIN
     Indication: BILIARY TRACT INFECTION
     Dosage: 2 G, EVERY 4 HOURS
     Route: 042
     Dates: start: 20190926, end: 20191001
  3. MEROPENEM. [Suspect]
     Active Substance: MEROPENEM
     Indication: BILIARY TRACT INFECTION
     Dosage: 1 G, 3X/DAY (EVERY 8 HOURS)
     Route: 042
     Dates: start: 20190926, end: 20191007

REACTIONS (1)
  - Pancytopenia [Recovering/Resolving]

NARRATIVE: CASE EVENT DATE: 20190929
